FAERS Safety Report 16544899 (Version 1)
Quarter: 2019Q3

REPORT INFORMATION
  Report Type: Spontaneous
  Country: US (occurrence: US)
  Receive Date: 20190708
  Receipt Date: 20190708
  Transmission Date: 20191004
  Serious: No
  Sender: FDA-Public Use
  Company Number: None

PATIENT
  Age: 65 Year
  Sex: Female
  Weight: 55.8 kg

DRUGS (8)
  1. DULOXIETINE [Concomitant]
  2. PLUS VITAMIN B-12 SHOTS [Concomitant]
  3. CREON [Concomitant]
     Active Substance: PANCRELIPASE AMYLASE\PANCRELIPASE LIPASE\PANCRELIPASE PROTEASE
  4. CALCIUM [Concomitant]
     Active Substance: CALCIUM
  5. DULOXETINE. [Suspect]
     Active Substance: DULOXETINE
     Dosage: ?          QUANTITY:15 CAPSULE(S);?
     Route: 048
  6. MAGNESIUM [Concomitant]
     Active Substance: MAGNESIUM
  7. TRAZODONE [Concomitant]
     Active Substance: TRAZODONE HYDROCHLORIDE
  8. KLONOPIN [Concomitant]
     Active Substance: CLONAZEPAM

REACTIONS (5)
  - Product substitution issue [None]
  - Withdrawal syndrome [None]
  - Impaired work ability [None]
  - Manufacturing materials issue [None]
  - Drug ineffective [None]
